FAERS Safety Report 6160527-1 (Version None)
Quarter: 2009Q2

REPORT INFORMATION
  Report Type: 
  Country: None (occurrence: None)
  Receive Date: 20090420
  Receipt Date: 20090408
  Transmission Date: 20091009
  Serious: Yes (Life-Threatening, Hospitalization)
  Sender: FDA-Public Use
  Company Number: GB-MERCK-0806GBR00114

PATIENT
  Age: 66 Year
  Sex: Male

DRUGS (16)
  1. ZETIA [Suspect]
     Route: 065
     Dates: end: 20080601
  2. DICLOFENAC [Suspect]
     Indication: GOUT
     Route: 065
     Dates: start: 20080605, end: 20080607
  3. ATORVASTATIN [Suspect]
     Route: 065
     Dates: end: 20080601
  4. ALLOPURINOL [Concomitant]
     Route: 065
  5. ASPIRIN [Concomitant]
     Route: 065
  6. ATENOLOL [Concomitant]
     Route: 065
  7. DIHYDROCODEINE [Concomitant]
     Route: 065
  8. DOXAZOSIN MESYLATE [Concomitant]
     Route: 065
  9. FERROUS SULFATE [Concomitant]
     Route: 065
  10. FUROSEMIDE [Concomitant]
     Route: 065
  11. LANSOPRAZOLE [Concomitant]
     Route: 065
  12. METFORMIN [Concomitant]
     Route: 065
  13. ACETAMINOPHEN [Concomitant]
     Route: 065
  14. PERINDOPRIL [Concomitant]
     Route: 065
  15. PREGABALIN [Concomitant]
     Route: 065
  16. TADALAFIL [Concomitant]
     Route: 065

REACTIONS (7)
  - BLOOD CREATINE PHOSPHOKINASE INCREASED [None]
  - BLOOD POTASSIUM INCREASED [None]
  - MALAISE [None]
  - METABOLIC ACIDOSIS [None]
  - RENAL FAILURE ACUTE [None]
  - RHABDOMYOLYSIS [None]
  - SYNCOPE [None]
